FAERS Safety Report 8457678-5 (Version None)
Quarter: 2012Q2

REPORT INFORMATION
  Report Type: 
  Country: None (occurrence: None)
  Receive Date: 20120618
  Receipt Date: 20120618
  Transmission Date: 20120825
  Serious: Yes (Hospitalization)
  Sender: FDA-Public Use
  Company Number: None

PATIENT
  Sex: Female
  Weight: 56.6996 kg

DRUGS (1)
  1. TAPAZOLE [Suspect]
     Indication: HYPERTHYROIDISM
     Dosage: 10MG A PILL TWICE A DAY
     Dates: start: 20120508, end: 20120602

REACTIONS (5)
  - URTICARIA [None]
  - WHITE BLOOD CELL COUNT DECREASED [None]
  - CHILLS [None]
  - PYREXIA [None]
  - IMMUNOSUPPRESSION [None]
